FAERS Safety Report 25607425 (Version 1)
Quarter: 2025Q3

REPORT INFORMATION
  Report Type: Spontaneous
  Country: US (occurrence: None)
  Receive Date: 20250725
  Receipt Date: 20250725
  Transmission Date: 20251021
  Serious: Yes (Hospitalization)
  Sender: FDA-CTU
  Company Number: None

PATIENT
  Age: 72 Year
  Sex: Female

DRUGS (2)
  1. OXALIPLATIN [Suspect]
     Active Substance: OXALIPLATIN
  2. CAPECITABINE [Concomitant]
     Active Substance: CAPECITABINE

REACTIONS (5)
  - Diarrhoea [None]
  - Abdominal pain [None]
  - Weight decreased [None]
  - Gastrointestinal inflammation [None]
  - Thrombosis [None]
